FAERS Safety Report 14544920 (Version 1)
Quarter: 2018Q1

REPORT INFORMATION
  Report Type: Spontaneous
  Country: GB (occurrence: GB)
  Receive Date: 20180217
  Receipt Date: 20180217
  Transmission Date: 20180509
  Serious: Yes (Other)
  Sender: FDA-Public Use
  Company Number: GB-TEVA-2018-GB-858116

PATIENT
  Sex: Male

DRUGS (2)
  1. BACLOFEN. [Suspect]
     Active Substance: BACLOFEN
     Dosage: 90 MILLIGRAM DAILY;
     Route: 037
  2. BACLOFEN. [Suspect]
     Active Substance: BACLOFEN
     Dosage: 185 MILLIGRAM DAILY;
     Route: 037

REACTIONS (3)
  - Dysphagia [Not Recovered/Not Resolved]
  - Lethargy [Recovered/Resolved]
  - Apnoea [Recovered/Resolved]
